FAERS Safety Report 15183903 (Version 4)
Quarter: 2018Q3

REPORT INFORMATION
  Report Type: Spontaneous
  Country: DE (occurrence: DE)
  Receive Date: 20180723
  Receipt Date: 20180926
  Transmission Date: 20181010
  Serious: Yes (Death, Hospitalization, Other)
  Sender: FDA-Public Use
  Company Number: DE-SA-2018SA194295

PATIENT
  Age: 59 Year
  Sex: Male

DRUGS (6)
  1. HEPARIN [Suspect]
     Active Substance: HEPARIN SODIUM
  2. AMIODARONE HYDROCHLORIDE. [Suspect]
     Active Substance: AMIODARONE HYDROCHLORIDE
  3. CLOPIDOGREL BISULFATE. [Suspect]
     Active Substance: CLOPIDOGREL BISULFATE
     Indication: MYOCARDIAL INFARCTION
     Dosage: NR
     Route: 065
  4. ACETYLSALICYLIC ACID [Suspect]
     Active Substance: ASPIRIN
     Indication: MYOCARDIAL INFARCTION
     Dosage: UNK
     Route: 065
  5. ENOXAPARIN SODIUM. [Suspect]
     Active Substance: ENOXAPARIN SODIUM
     Indication: MYOCARDIAL INFARCTION
     Dosage: UNK
     Route: 065
  6. ABCIXIMAB [Suspect]
     Active Substance: ABCIXIMAB

REACTIONS (12)
  - Amaurosis [Unknown]
  - Cerebral infarction [Fatal]
  - Pituitary tumour benign [Fatal]
  - Retinal artery occlusion [Unknown]
  - Disease progression [Unknown]
  - Respiratory depression [Unknown]
  - Pituitary haemorrhage [Fatal]
  - Brain oedema [Fatal]
  - Coma [Unknown]
  - Headache [Unknown]
  - Hemiparesis [Unknown]
  - Condition aggravated [Unknown]
